FAERS Safety Report 18509758 (Version 2)
Quarter: 2022Q1

REPORT INFORMATION
  Report Type: Spontaneous
  Country: IN (occurrence: IN)
  Receive Date: 20201117
  Receipt Date: 20220301
  Transmission Date: 20220423
  Serious: Yes (Other)
  Sender: FDA-Public Use
  Company Number: IN-SUN PHARMACEUTICAL INDUSTRIES LTD-2019R1-231361

PATIENT
  Age: 34 Year
  Sex: Female

DRUGS (2)
  1. FLUVOXAMINE [Suspect]
     Active Substance: FLUVOXAMINE
     Indication: Obsessive-compulsive disorder
     Dosage: 200 MILLIGRAM, DAILY
     Route: 065
  2. CLONAZEPAM [Concomitant]
     Active Substance: CLONAZEPAM
     Indication: Anxiety
     Dosage: 0.5 MILLIGRAM, DAILY
     Route: 065

REACTIONS (1)
  - Galactorrhoea [Recovering/Resolving]
